FAERS Safety Report 8414379-7 (Version None)
Quarter: 2012Q2

REPORT INFORMATION
  Report Type: 
  Country: None (occurrence: None)
  Receive Date: 20120605
  Receipt Date: 20120525
  Transmission Date: 20120825
  Serious: Yes (Life-Threatening, Hospitalization)
  Sender: FDA-Public Use
  Company Number: JP-BAXTER-2012BAX006663

PATIENT
  Sex: Female

DRUGS (7)
  1. CYCLOPHOSPHAMIDE [Suspect]
     Indication: MULTIPLE MYELOMA
     Route: 041
     Dates: start: 20120518, end: 20120518
  2. FLUCONAZOLE [Concomitant]
     Indication: FUNGAL INFECTION
     Route: 048
     Dates: end: 20120519
  3. EMEND [Suspect]
     Indication: VOMITING
     Route: 048
     Dates: start: 20120518, end: 20120518
  4. EMEND [Suspect]
     Route: 048
     Dates: start: 20120519, end: 20120519
  5. VALTREX [Concomitant]
     Indication: VIRAL INFECTION
     Route: 048
     Dates: end: 20120519
  6. COTRIM [Concomitant]
     Route: 048
     Dates: end: 20120519
  7. LANSOPRAZOLE [Concomitant]
     Indication: GASTRITIS PROPHYLAXIS
     Route: 048
     Dates: end: 20120519

REACTIONS (3)
  - INAPPROPRIATE ANTIDIURETIC HORMONE SECRETION [None]
  - CONVULSION [None]
  - ALTERED STATE OF CONSCIOUSNESS [None]
